FAERS Safety Report 14019743 (Version 2)
Quarter: 2020Q3

REPORT INFORMATION
  Report Type: Report from Study
  Country: JP (occurrence: JP)
  Receive Date: 20170928
  Receipt Date: 20171013
  Transmission Date: 20201104
  Serious: Yes (Hospitalization)
  Sender: FDA-Public Use
  Company Number: JP-ASTRAZENECA-2016SE96076

PATIENT
  Age: 20491 Day
  Sex: Female

DRUGS (63)
  1. KETOPROFEN. [Concomitant]
     Active Substance: KETOPROFEN
     Indication: CANCER PAIN
     Dosage: 30 MG, PRN
     Route: 003
     Dates: start: 20160601, end: 20161031
  2. PRIMPERAN [Concomitant]
     Active Substance: METOCLOPRAMIDE HYDROCHLORIDE
     Indication: HYPOTHYROIDISM
     Dosage: 5 MG, PRN
     Route: 048
     Dates: start: 20160825, end: 20161031
  3. MEROPENEM. [Concomitant]
     Active Substance: MEROPENEM
     Indication: INFECTION PROPHYLAXIS
     Route: 042
     Dates: start: 20160910, end: 20160910
  4. CERCINE [Concomitant]
     Active Substance: DIAZEPAM
     Indication: PREMEDICATION
     Dosage: 10.0MG ONCE/SINGLE ADMINISTRATION
     Route: 042
     Dates: start: 20160909, end: 20160909
  5. POSTERISAN FORTE [Concomitant]
     Active Substance: LIDOCAINE
     Indication: PROCTALGIA
     Dosage: 2.0G AS REQUIRED
     Route: 054
     Dates: start: 20160909, end: 20161013
  6. KENALOG IN ORABASE [Concomitant]
     Active Substance: TRIAMCINOLONE ACETONIDE
     Indication: STOMATITIS
     Dosage: 1.0G AS REQUIRED
     Route: 002
     Dates: start: 20160920, end: 20161013
  7. SATO SALBE [Concomitant]
     Indication: OEDEMA
     Dosage: 1.0G AS REQUIRED
     Route: 003
     Dates: start: 20160926
  8. THYRADIN?S [Concomitant]
     Active Substance: LEVOTHYROXINE
     Indication: HYPOTHYROIDISM
     Dosage: 25.0UG AS REQUIRED
     Route: 048
     Dates: start: 20161003, end: 20161012
  9. FAMOTIDINE. [Concomitant]
     Active Substance: FAMOTIDINE
     Indication: GASTROOESOPHAGEAL REFLUX DISEASE
     Dosage: 10MG BID
     Route: 048
     Dates: start: 20161014
  10. MEDI4736 [Suspect]
     Active Substance: DURVALUMAB
     Indication: NON-SMALL CELL LUNG CANCER
     Route: 042
     Dates: start: 20160728, end: 20160728
  11. MAGNESIUM OXIDE. [Concomitant]
     Active Substance: MAGNESIUM OXIDE
     Indication: CONSTIPATION
     Dosage: 750 MG, TID
     Route: 003
     Dates: start: 20160411, end: 20160903
  12. LACTEC [Concomitant]
     Active Substance: CALCIUM CHLORIDE ANHYDROUS\POTASSIUM CHLORIDE\SODIUM CHLORIDE\SODIUM LACTATE
     Indication: DIARRHOEA
     Route: 042
     Dates: start: 20160911, end: 20160913
  13. MEROPENEM. [Concomitant]
     Active Substance: MEROPENEM
     Indication: INFECTION PROPHYLAXIS
     Route: 042
     Dates: start: 20160911, end: 20160913
  14. CALONAL [Concomitant]
     Active Substance: ACETAMINOPHEN
     Indication: PYREXIA
     Dosage: 400.0MG AS REQUIRED
     Route: 048
     Dates: start: 20160909
  15. THYRADIN?S [Concomitant]
     Active Substance: LEVOTHYROXINE
     Indication: HYPOTHYROIDISM
     Dosage: 25.0UG AS REQUIRED
     Route: 048
     Dates: start: 20161013
  16. LYRICA [Suspect]
     Active Substance: PREGABALIN
     Indication: NEURALGIA
     Dosage: 150 MG, BID
     Route: 048
     Dates: end: 20161013
  17. MAXIPIME [Concomitant]
     Active Substance: CEFEPIME HYDROCHLORIDE
     Indication: INFECTION PROPHYLAXIS
     Route: 042
     Dates: start: 20160910, end: 20160910
  18. PREDONINE [Concomitant]
     Active Substance: PREDNISOLONE
     Indication: ENTEROCOLITIS
     Route: 048
     Dates: start: 20161005, end: 20161011
  19. THYRADIN?S [Concomitant]
     Active Substance: LEVOTHYROXINE
     Indication: HYPOTHYROIDISM
     Dosage: 25.0UG AS REQUIRED
     Route: 048
     Dates: start: 20161001, end: 20161001
  20. MEDI4736 [Suspect]
     Active Substance: DURVALUMAB
     Indication: NON-SMALL CELL LUNG CANCER
     Route: 042
     Dates: start: 20160602, end: 20160602
  21. TREMELIMUMAB. [Suspect]
     Active Substance: TREMELIMUMAB
     Indication: NON-SMALL CELL LUNG CANCER
     Route: 042
     Dates: start: 20160602, end: 20160602
  22. TREMELIMUMAB. [Suspect]
     Active Substance: TREMELIMUMAB
     Indication: NON-SMALL CELL LUNG CANCER
     Route: 042
     Dates: start: 20160728, end: 20160728
  23. TREMELIMUMAB. [Suspect]
     Active Substance: TREMELIMUMAB
     Indication: NON-SMALL CELL LUNG CANCER
     Route: 042
     Dates: start: 20160825, end: 20160825
  24. OPSO [Concomitant]
     Active Substance: MORPHINE HYDROCHLORIDE
     Indication: NON-SMALL CELL LUNG CANCER
     Dosage: 15 MG, PRN
     Route: 048
     Dates: start: 20160503, end: 20161013
  25. METHYCOBAL [Concomitant]
     Active Substance: METHYLCOBALAMIN
     Indication: NEURALGIA
     Dosage: 1500 UG, TID
     Route: 048
  26. SODIUM GUALENATE [Concomitant]
     Active Substance: SODIUM GUALENATE
     Indication: OROPHARYNGEAL PAIN
     Dosage: 2 G, PRN
     Route: 060
     Dates: end: 20161013
  27. PRIMPERAN [Concomitant]
     Active Substance: METOCLOPRAMIDE HYDROCHLORIDE
     Indication: VOMITING
     Dosage: 5 MG, PRN
     Route: 048
     Dates: start: 20160825, end: 20161031
  28. PREDONINE [Concomitant]
     Active Substance: PREDNISOLONE
     Indication: ENTEROCOLITIS
     Route: 042
     Dates: start: 20160912, end: 20160916
  29. MEDI4736 [Suspect]
     Active Substance: DURVALUMAB
     Indication: NON-SMALL CELL LUNG CANCER
     Route: 042
     Dates: start: 20160825, end: 20160825
  30. DAIPHEN [Suspect]
     Active Substance: SULFAMETHOXAZOLE\TRIMETHOPRIM
     Indication: PNEUMOCYSTIS JIROVECII PNEUMONIA
     Route: 048
     Dates: start: 20160920, end: 20161011
  31. LASIX [Suspect]
     Active Substance: FUROSEMIDE
     Indication: OEDEMA
     Route: 048
     Dates: start: 20160919, end: 20161013
  32. MS CONTIN [Concomitant]
     Active Substance: MORPHINE SULFATE
     Indication: NON-SMALL CELL LUNG CANCER
     Dosage: 90 MG, TID
     Route: 048
     Dates: start: 20160504
  33. KCL [Concomitant]
     Active Substance: POTASSIUM CHLORIDE
     Indication: DIARRHOEA
     Route: 048
     Dates: start: 20160910, end: 20160930
  34. PREDONINE [Concomitant]
     Active Substance: PREDNISOLONE
     Indication: ENTEROCOLITIS
     Route: 042
     Dates: start: 20160917, end: 20160920
  35. PREDONINE [Concomitant]
     Active Substance: PREDNISOLONE
     Indication: ENTEROCOLITIS
     Route: 048
     Dates: start: 20160926, end: 20160929
  36. LOPERAMIDE [Concomitant]
     Active Substance: LOPERAMIDE
     Indication: DIARRHOEA
     Dosage: 2.0MG AS REQUIRED
     Route: 048
     Dates: start: 20160911, end: 20161013
  37. WHITE PETROLATUM [Concomitant]
     Active Substance: PETROLATUM
     Indication: DRY SKIN
     Dosage: 1.0G AS REQUIRED
     Route: 003
     Dates: start: 20160916, end: 20161013
  38. MIYA?BM [Concomitant]
     Active Substance: CLOSTRIDIUM BUTYRICUM SPORES STRAIN M-55
     Indication: DIARRHOEA
     Route: 048
     Dates: start: 20161014, end: 20161022
  39. BONALON [Suspect]
     Active Substance: ALENDRONATE SODIUM
     Indication: OSTEOPOROSIS PROPHYLAXIS
     Route: 048
     Dates: start: 20160920, end: 20161013
  40. LANSOPRAZOLE. [Suspect]
     Active Substance: LANSOPRAZOLE
     Indication: GASTROOESOPHAGEAL REFLUX DISEASE
     Dosage: 15MG QD
     Route: 048
     Dates: end: 20161013
  41. SOLDEM 3A [Concomitant]
     Active Substance: CARBOHYDRATES\POTASSIUM CHLORIDE\SODIUM CHLORIDE\SODIUM LACTATE
     Indication: DIARRHOEA
     Route: 042
     Dates: start: 20160910
  42. SOLDEM 3A [Concomitant]
     Active Substance: CARBOHYDRATES\POTASSIUM CHLORIDE\SODIUM CHLORIDE\SODIUM LACTATE
     Indication: DIARRHOEA
     Route: 042
     Dates: start: 20160911, end: 20160912
  43. PREDONINE [Concomitant]
     Active Substance: PREDNISOLONE
     Indication: ENTEROCOLITIS
     Route: 048
     Dates: start: 20161012, end: 20161013
  44. AMPHOTERICIN B. [Concomitant]
     Active Substance: AMPHOTERICIN B
     Indication: ORAL CANDIDIASIS
     Route: 002
     Dates: start: 20160920, end: 20160926
  45. MIYA?BM [Concomitant]
     Active Substance: CLOSTRIDIUM BUTYRICUM SPORES STRAIN M-55
     Indication: DIARRHOEA
     Route: 048
     Dates: start: 20160907, end: 20161013
  46. SOLDEM 1 [Concomitant]
     Active Substance: DEXTROSE\SODIUM CHLORIDE\SODIUM LACTATE
     Indication: DIARRHOEA
     Route: 042
     Dates: start: 20160912
  47. BESOFTEN [Concomitant]
     Active Substance: PENTOSAN POLYSULFATE SODIUM
     Indication: DRY SKIN
     Dosage: 1.0G AS REQUIRED
     Route: 003
     Dates: start: 20160913
  48. BUSCOPAN [Concomitant]
     Active Substance: BUTYLSCOPOLAMINE BROMIDE
     Indication: PREMEDICATION
     Dosage: 20.0MG ONCE/SINGLE ADMINISTRATION
     Route: 030
     Dates: start: 20160909, end: 20160909
  49. GLYCERIN. [Concomitant]
     Active Substance: GLYCERIN
     Indication: PREMEDICATION
     Dosage: 120.0ML ONCE/SINGLE ADMINISTRATION
     Route: 054
     Dates: start: 20160909, end: 20160909
  50. ISODINE [Concomitant]
     Active Substance: POVIDONE-IODINE
     Indication: OROPHARYNGEAL PAIN
     Dosage: 1.0ML AS REQUIRED
     Route: 002
     Dates: start: 20160917, end: 20161013
  51. AMPHOTERICIN B. [Concomitant]
     Active Substance: AMPHOTERICIN B
     Indication: ORAL CANDIDIASIS
     Route: 002
     Dates: start: 20160927, end: 20161022
  52. MEDI4736 [Suspect]
     Active Substance: DURVALUMAB
     Indication: NON-SMALL CELL LUNG CANCER
     Route: 042
     Dates: start: 20160630, end: 20160630
  53. TREMELIMUMAB. [Suspect]
     Active Substance: TREMELIMUMAB
     Indication: NON-SMALL CELL LUNG CANCER
     Route: 042
     Dates: start: 20160630, end: 20160630
  54. MIRTAZAPINE. [Suspect]
     Active Substance: MIRTAZAPINE
     Indication: INSOMNIA
     Dosage: 15MG QD
     Route: 048
     Dates: end: 20161013
  55. TRAMAL [Concomitant]
     Active Substance: TRAMADOL
     Indication: NEURALGIA
     Dosage: 200 MG, QID
     Route: 048
     Dates: end: 20160907
  56. MIRTAZAPINE. [Concomitant]
     Active Substance: MIRTAZAPINE
     Indication: INSOMNIA
     Dosage: 15 MG, QD
     Route: 048
     Dates: end: 20161013
  57. KCL [Concomitant]
     Active Substance: POTASSIUM CHLORIDE
     Indication: DIARRHOEA
     Route: 042
     Dates: start: 20160912, end: 20160915
  58. PREDONINE [Concomitant]
     Active Substance: PREDNISOLONE
     Indication: ENTEROCOLITIS
     Route: 042
     Dates: start: 20160921, end: 20160925
  59. PREDONINE [Concomitant]
     Active Substance: PREDNISOLONE
     Indication: ENTEROCOLITIS
     Route: 048
     Dates: start: 20160930, end: 20161004
  60. ALBUMIN TANNATE [Concomitant]
     Active Substance: ALBUMIN BOVINE\TANNIC ACID
     Indication: DIARRHOEA
     Route: 048
     Dates: start: 20160910, end: 20160927
  61. NOVAMIN (PROCHLORPERAZINE) [Concomitant]
     Active Substance: PROCHLORPERAZINE
     Indication: VOMITING
     Route: 048
     Dates: start: 20160907, end: 20160927
  62. ANTEBATE [Concomitant]
     Active Substance: BETAMETHASONE DIPROPIONATE
     Indication: OEDEMA
     Dosage: 1.0G AS REQUIRED
     Route: 003
     Dates: start: 20160926
  63. GRAN [Concomitant]
     Active Substance: FILGRASTIM
     Indication: NEUTROPENIA
     Route: 057
     Dates: start: 20161014, end: 20161016

REACTIONS (3)
  - Oedema peripheral [Recovered/Resolved]
  - Enterocolitis [Recovered/Resolved]
  - Neutropenia [Recovered/Resolved]

NARRATIVE: CASE EVENT DATE: 20160906
